FAERS Safety Report 4675486-8 (Version None)
Quarter: 2005Q2

REPORT INFORMATION
  Report Type: 
  Country: None (occurrence: None)
  Receive Date: 20050527
  Receipt Date: 20050322
  Transmission Date: 20051028
  Serious: No
  Sender: FDA-Public Use
  Company Number: US-BRISTOL-MYERS SQUIBB COMPANY-12907325

PATIENT
  Age: 20 Year
  Sex: Male
  Weight: 104 kg

DRUGS (2)
  1. ABILIFY [Suspect]
     Indication: DEPRESSION
     Dates: start: 20041001
  2. LEXAPRO [Concomitant]
     Dosage: 10 MG TO 20 MG

REACTIONS (2)
  - DYSPHAGIA [None]
  - MUSCLE SPASMS [None]
